FAERS Safety Report 25161573 (Version 5)
Quarter: 2025Q4

REPORT INFORMATION
  Report Type: Report from Study
  Country: JP (occurrence: JP)
  Receive Date: 20250404
  Receipt Date: 20251017
  Transmission Date: 20260117
  Serious: Yes (Other)
  Sender: ABBVIE
  Company Number: JP-TAKEDA-2024TJP006151

PATIENT
  Age: 51 Year
  Sex: Male
  Weight: 101 kg

DRUGS (4)
  1. LEUPROLIDE ACETATE [Suspect]
     Active Substance: LEUPROLIDE ACETATE
     Indication: Bulbospinal muscular atrophy congenital
     Dosage: 11.25 MILLIGRAM, Q3MONTHS
     Route: 058
     Dates: start: 20180425
  2. WHITE PETROLATUM [Concomitant]
     Active Substance: PETROLATUM
     Indication: Wound
     Route: 065
     Dates: start: 20201014, end: 20210119
  3. LOXOPROFEN SODIUM [Concomitant]
     Active Substance: LOXOPROFEN SODIUM
     Indication: Back pain
     Dosage: 60 MILLIGRAM
     Route: 065
     Dates: start: 20210714, end: 20211022
  4. REBAMIPIDE [Concomitant]
     Active Substance: REBAMIPIDE
     Indication: Back pain
     Dosage: 100 MILLIGRAM
     Route: 065
     Dates: start: 20210714, end: 20211022

REACTIONS (3)
  - Diabetes mellitus [Recovered/Resolved]
  - Injection site ulcer [Recovering/Resolving]
  - Wound [Recovered/Resolved]

NARRATIVE: CASE EVENT DATE: 20180725
